FAERS Safety Report 4663698-9 (Version None)
Quarter: 2005Q2

REPORT INFORMATION
  Report Type: 
  Country: None (occurrence: None)
  Receive Date: 20050516
  Receipt Date: 20050512
  Transmission Date: 20051028
  Serious: Yes (Hospitalization)
  Sender: FDA-Public Use
  Company Number: FABR-11090

PATIENT
  Age: 44 Year
  Sex: Male
  Weight: 61.2356 kg

DRUGS (12)
  1. FABRAZYME [Suspect]
     Indication: FABRY'S DISEASE
     Dosage: 70 MG Q2WKS IV
     Route: 042
     Dates: start: 20030715
  2. TEGRETOL [Concomitant]
  3. PREDNISONE [Concomitant]
  4. SANDIMMUNE [Concomitant]
  5. METOCLOPRAMIDE [Concomitant]
  6. ZOFRAN [Concomitant]
  7. XANAX [Concomitant]
  8. RESTORIL [Concomitant]
  9. PLENDIL [Concomitant]
  10. ALBUTEROL [Concomitant]
  11. LIPRAM CR [Concomitant]
  12. VICODIN [Concomitant]

REACTIONS (10)
  - ANGINA PECTORIS [None]
  - CONDITION AGGRAVATED [None]
  - DYSPNOEA [None]
  - FABRY'S DISEASE [None]
  - HEADACHE [None]
  - HEART RATE INCREASED [None]
  - PAIN [None]
  - SHOULDER PAIN [None]
  - TEMPERATURE REGULATION DISORDER [None]
  - VOMITING [None]
